FAERS Safety Report 8348512-2 (Version None)
Quarter: 2012Q2

REPORT INFORMATION
  Report Type: 
  Country: None (occurrence: None)
  Receive Date: 20120509
  Receipt Date: 20120419
  Transmission Date: 20120825
  Serious: Yes (Other)
  Sender: FDA-Public Use
  Company Number: PHHY2012IT038928

PATIENT
  Age: 77 Year

DRUGS (1)
  1. ZOMETA [Suspect]
     Indication: BREAST CANCER
     Dosage: 4 MG EVERY 4 WEEKS (MONTHLY)
     Route: 042

REACTIONS (2)
  - JAW FRACTURE [None]
  - OSTEONECROSIS OF JAW [None]
